FAERS Safety Report 5392426-7 (Version None)
Quarter: 2007Q3

REPORT INFORMATION
  Report Type: 
  Country: None (occurrence: None)
  Receive Date: 20070720
  Receipt Date: 20070719
  Transmission Date: 20080115
  Serious: Yes (Death, Hospitalization)
  Sender: FDA-Public Use
  Company Number: B0479767A

PATIENT
  Age: 30 Year
  Sex: Female

DRUGS (1)
  1. AUGMENTIN '125' [Suspect]
     Indication: BRONCHITIS
     Dosage: 2TAB TWICE PER DAY
     Route: 065

REACTIONS (3)
  - DEATH [None]
  - DIARRHOEA [None]
  - LOBAR PNEUMONIA [None]
